FAERS Safety Report 8048217-1 (Version None)
Quarter: 2012Q1

REPORT INFORMATION
  Report Type: 
  Country: None (occurrence: None)
  Receive Date: 20120113
  Receipt Date: 20120113
  Transmission Date: 20120608
  Serious: No
  Sender: FDA-Public Use
  Company Number: None

PATIENT
  Sex: Female

DRUGS (1)
  1. DEPLIN 7.5 MG PAULAB [Suspect]
     Indication: MAJOR DEPRESSION
     Dosage: 15MG QD 1/2 TAB PO QD
     Route: 048
     Dates: start: 20110830, end: 20111130

REACTIONS (2)
  - FLUSHING [None]
  - HYPERHIDROSIS [None]
